FAERS Safety Report 12627109 (Version 2)
Quarter: 2016Q3

REPORT INFORMATION
  Report Type: Report from Study
  Country: US (occurrence: US)
  Receive Date: 20160805
  Receipt Date: 20160811
  Transmission Date: 20161109
  Serious: Yes (Hospitalization, Other)
  Sender: FDA-Public Use
  Company Number: US-ACTELION-A-NJ2012-74345

PATIENT
  Age: 80 Year
  Sex: Male

DRUGS (10)
  1. SUVOREXANT. [Concomitant]
     Active Substance: SUVOREXANT
     Dosage: 10 MG, QPM
  2. QUININE [Concomitant]
     Active Substance: QUININE
  3. SILDENAFIL. [Concomitant]
     Active Substance: SILDENAFIL
     Dosage: 20 MG, TID
  4. TRACLEER [Suspect]
     Active Substance: BOSENTAN
     Dosage: 62.5 MG, BID
     Route: 048
     Dates: start: 20020515
  5. COQ10 [Concomitant]
     Active Substance: UBIDECARENONE
     Dosage: 10 ML, QD
  6. TRACLEER [Suspect]
     Active Substance: BOSENTAN
     Dosage: 125 MG, BID
     Route: 048
     Dates: start: 20160613
  7. AMITRIPTYLINE [Concomitant]
     Active Substance: AMITRIPTYLINE
     Dosage: 10 MG, QPM
  8. MIDODRINE [Concomitant]
     Active Substance: MIDODRINE
     Dosage: 2.5 MG, TID
  9. TRACLEER [Suspect]
     Active Substance: BOSENTAN
     Indication: PULMONARY ARTERIAL HYPERTENSION
     Dosage: 125 MG, BID
     Route: 048
     Dates: end: 20160611
  10. PLAVIX [Concomitant]
     Active Substance: CLOPIDOGREL BISULFATE

REACTIONS (27)
  - Normal pressure hydrocephalus [Unknown]
  - Liver function test increased [Unknown]
  - Alanine aminotransferase increased [Unknown]
  - Blood alkaline phosphatase increased [Unknown]
  - Dyspnoea [Unknown]
  - Confusional state [Unknown]
  - Metastases to liver [Unknown]
  - Dizziness [Unknown]
  - Fatigue [Unknown]
  - Blood bilirubin increased [Unknown]
  - Gait disturbance [Unknown]
  - Depressed mood [Unknown]
  - Liver disorder [Unknown]
  - Aspartate aminotransferase increased [Unknown]
  - Somnolence [Unknown]
  - Presyncope [Unknown]
  - Oesophagitis [Unknown]
  - Abdominal pain [Not Recovered/Not Resolved]
  - Fall [Unknown]
  - Weight decreased [Unknown]
  - Muscle spasms [Unknown]
  - Lung neoplasm malignant [Unknown]
  - Asthenia [Unknown]
  - Feeling abnormal [Unknown]
  - Brain cancer metastatic [Unknown]
  - Abdominal discomfort [Unknown]
  - Malaise [Unknown]

NARRATIVE: CASE EVENT DATE: 2016
